FAERS Safety Report 8901979 (Version 2)
Quarter: 2014Q2

REPORT INFORMATION
  Report Type: Spontaneous
  Country: RU (occurrence: RU)
  Receive Date: 20121112
  Receipt Date: 20131021
  Transmission Date: 20141212
  Serious: Yes (Hospitalization, Other)
  Sender: FDA-Public Use
  Company Number: RU-ASTRAZENECA-2012SE83864

PATIENT
  Age: 13514 Day
  Sex: Male

DRUGS (3)
  1. SEROQUEL [Suspect]
     Indication: SCHIZOPHRENIA
     Route: 048
     Dates: start: 201204
  2. SEROQUEL [Suspect]
     Indication: SCHIZOPHRENIA
     Route: 048
     Dates: end: 20120528
  3. SEROQUEL [Suspect]
     Indication: SCHIZOPHRENIA
     Route: 048
     Dates: start: 20120528, end: 201206

REACTIONS (4)
  - Schizophrenia [Recovered/Resolved]
  - Erythema multiforme [Recovered/Resolved]
  - Gastric ulcer [Recovered/Resolved]
  - Transaminases increased [Recovered/Resolved]
